FAERS Safety Report 20069481 (Version 1)
Quarter: 2021Q4

REPORT INFORMATION
  Report Type: Spontaneous
  Country: US (occurrence: None)
  Receive Date: 20211114
  Receipt Date: 20211114
  Transmission Date: 20220304
  Serious: Yes (Disabling)
  Sender: FDA-Public Use
  Company Number: None

PATIENT
  Age: 70 Year
  Sex: Male
  Weight: 67.5 kg

DRUGS (1)
  1. NURTEC ODT [Suspect]
     Active Substance: RIMEGEPANT SULFATE
     Indication: Hemiplegic migraine
     Dosage: OTHER QUANTITY : 8 TABLET(S);?FREQUENCY : AS NEEDED;?
     Route: 060
     Dates: start: 20211107, end: 20211108

REACTIONS (5)
  - Disturbance in attention [None]
  - Restless legs syndrome [None]
  - Amnesia [None]
  - Aphasia [None]
  - Hemiplegia [None]

NARRATIVE: CASE EVENT DATE: 20211107
